FAERS Safety Report 6626194-5 (Version None)
Quarter: 2010Q1

REPORT INFORMATION
  Report Type: 
  Country: None (occurrence: None)
  Receive Date: 20100310
  Receipt Date: 20100305
  Transmission Date: 20100710
  Serious: Yes (Hospitalization, Other)
  Sender: FDA-Public Use
  Company Number: ES-ROXANE LABORATORIES, INC.-2010-RO-00235RO

PATIENT
  Age: 13 Month
  Sex: Male

DRUGS (6)
  1. METHADONE HYDROCHLORIDE [Suspect]
  2. COCAINE [Suspect]
  3. HEROIN [Suspect]
  4. NALOXONE [Suspect]
     Indication: THERAPEUTIC AGENT TOXICITY
  5. MORHINE CHLORIDE [Concomitant]
     Indication: DRUG WITHDRAWAL SYNDROME
  6. CLONIDINE [Concomitant]
     Indication: DRUG WITHDRAWAL SYNDROME

REACTIONS (9)
  - ACCIDENTAL EXPOSURE [None]
  - DRUG SCREEN POSITIVE [None]
  - DRUG TOXICITY [None]
  - DRUG WITHDRAWAL SYNDROME [None]
  - HYPERREFLEXIA [None]
  - LETHARGY [None]
  - MUSCLE RIGIDITY [None]
  - RESPIRATORY FAILURE [None]
  - THERAPEUTIC AGENT TOXICITY [None]
